FAERS Safety Report 6608715-1 (Version None)
Quarter: 2010Q1

REPORT INFORMATION
  Report Type: 
  Country: None (occurrence: None)
  Receive Date: 20100301
  Receipt Date: 20100216
  Transmission Date: 20100710
  Serious: Yes (Hospitalization, Other)
  Sender: FDA-Public Use
  Company Number: PHHY2010JP08800

PATIENT
  Age: 73 Year
  Sex: Female

DRUGS (6)
  1. NEORAL [Suspect]
     Indication: INTERSTITIAL LUNG DISEASE
     Dosage: 25 MG, TID
     Route: 048
     Dates: start: 20091122
  2. NEORAL [Suspect]
     Dosage: 50 MG/DAY
  3. PREDONINE [Suspect]
     Dosage: 20 MG, UNK
     Dates: start: 20100201
  4. PREDONINE [Suspect]
     Dosage: 10 MG, UNK
  5. BAKTAR [Concomitant]
     Route: 048
  6. MUCOSTA [Concomitant]
     Route: 048

REACTIONS (4)
  - ALTERED STATE OF CONSCIOUSNESS [None]
  - COGNITIVE DISORDER [None]
  - DEMENTIA [None]
  - HEPATIC FUNCTION ABNORMAL [None]
